FAERS Safety Report 7484944-2 (Version None)
Quarter: 2011Q2

REPORT INFORMATION
  Report Type: 
  Country: None (occurrence: None)
  Receive Date: 20110517
  Receipt Date: 20110513
  Transmission Date: 20111010
  Serious: Yes (Hospitalization)
  Sender: FDA-Public Use
  Company Number: US-ROCHE-773223

PATIENT
  Sex: Female
  Weight: 53.1 kg

DRUGS (3)
  1. TELAPREVIR [Suspect]
     Route: 048
     Dates: start: 20110207, end: 20110426
  2. RIBAVIRIN [Suspect]
     Route: 048
     Dates: start: 20110207, end: 20110426
  3. PEGINTERFERON ALFA-2A [Suspect]
     Route: 065
     Dates: start: 20110207

REACTIONS (1)
  - ANAEMIA [None]
